FAERS Safety Report 8340258-X (Version None)
Quarter: 2012Q2

REPORT INFORMATION
  Report Type: 
  Country: None (occurrence: None)
  Receive Date: 20120507
  Receipt Date: 20120502
  Transmission Date: 20120825
  Serious: Yes (Other)
  Sender: FDA-Public Use
  Company Number: PHEH2012US009468

PATIENT
  Sex: Female

DRUGS (1)
  1. NEORAL [Suspect]
     Indication: LIVER TRANSPLANT
     Dosage: 50 MG, BID
     Route: 048

REACTIONS (2)
  - FALL [None]
  - HIP FRACTURE [None]
